FAERS Safety Report 6140530-8 (Version None)
Quarter: 2009Q2

REPORT INFORMATION
  Report Type: 
  Country: None (occurrence: None)
  Receive Date: 20090402
  Receipt Date: 20090324
  Transmission Date: 20091009
  Serious: Yes (Hospitalization)
  Sender: FDA-Public Use
  Company Number: US-RANBAXY-2009RR-22976

PATIENT
  Age: 56 Year
  Sex: Male

DRUGS (6)
  1. SIMVASTATIN [Suspect]
     Dosage: 40 MG, QD
  2. CYCLOSPORINE [Suspect]
     Dosage: 75 MG, BID
  3. RANOLAZINE [Suspect]
     Dosage: 500 MG, QD
  4. CARVEDILOL [Suspect]
     Dosage: 12.5 MG, BID
  5. DILTIAZEM [Suspect]
     Indication: ANGINA PECTORIS
     Dosage: 60 MG, BID
  6. DILTIAZEM [Suspect]
     Indication: CARDIAC FAILURE

REACTIONS (2)
  - DRUG INTERACTION [None]
  - RHABDOMYOLYSIS [None]
